FAERS Safety Report 8184424-5 (Version None)
Quarter: 2012Q1

REPORT INFORMATION
  Report Type: 
  Country: None (occurrence: None)
  Receive Date: 20120305
  Receipt Date: 20120223
  Transmission Date: 20120608
  Serious: Yes (Other)
  Sender: FDA-Public Use
  Company Number: DK-JNJFOC-20120212492

PATIENT
  Sex: Male
  Weight: 107 kg

DRUGS (2)
  1. STELARA [Suspect]
     Route: 058
     Dates: start: 20090202, end: 20101001
  2. STELARA [Suspect]
     Indication: PSORIASIS
     Route: 058
     Dates: start: 20110801, end: 20110801

REACTIONS (6)
  - VISUAL ACUITY REDUCED [None]
  - RESTLESSNESS [None]
  - RHINITIS [None]
  - DYSPNOEA [None]
  - NASAL OBSTRUCTION [None]
  - ANXIETY [None]
